FAERS Safety Report 25264958 (Version 1)
Quarter: 2025Q2

REPORT INFORMATION
  Report Type: Spontaneous
  Country: GB (occurrence: GB)
  Receive Date: 20250502
  Receipt Date: 20250502
  Transmission Date: 20250716
  Serious: Yes (Hospitalization, Other)
  Sender: AMGEN
  Company Number: None

PATIENT
  Age: 58 Year
  Sex: Male
  Weight: 104 kg

DRUGS (13)
  1. EVOLOCUMAB [Suspect]
     Active Substance: EVOLOCUMAB
     Indication: Blood cholesterol increased
     Dosage: 140 MILLIGRAM, Q2WK
     Route: 065
     Dates: start: 20250207, end: 20250304
  2. VENTOLIN [Concomitant]
     Active Substance: ALBUTEROL SULFATE
  3. SYMBICORT [Concomitant]
     Active Substance: BUDESONIDE\FORMOTEROL FUMARATE DIHYDRATE
  4. DYMISTA [Concomitant]
     Active Substance: AZELASTINE HYDROCHLORIDE\FLUTICASONE PROPIONATE
  5. TAMSULOSIN [Concomitant]
     Active Substance: TAMSULOSIN
  6. SOLIFENACIN [Concomitant]
     Active Substance: SOLIFENACIN
  7. TELMISARTAN [Concomitant]
     Active Substance: TELMISARTAN
  8. LERCANIDIPINE [Concomitant]
     Active Substance: LERCANIDIPINE
  9. FEXOFENADINE [Concomitant]
     Active Substance: FEXOFENADINE HYDROCHLORIDE
  10. BEZAFIBRATE [Concomitant]
     Active Substance: BEZAFIBRATE
  11. EZETIMIBE [Concomitant]
     Active Substance: EZETIMIBE
  12. BEMPEDOIC ACID [Concomitant]
     Active Substance: BEMPEDOIC ACID
  13. VITAMIN D [Concomitant]
     Active Substance: VITAMIN D NOS

REACTIONS (3)
  - Vestibular neuronitis [Recovered/Resolved with Sequelae]
  - Mood altered [Recovered/Resolved]
  - Mood altered [Recovered/Resolved]

NARRATIVE: CASE EVENT DATE: 20250211
